FAERS Safety Report 19672674 (Version 1)
Quarter: 2021Q3

REPORT INFORMATION
  Report Type: Spontaneous
  Country: FR (occurrence: FR)
  Receive Date: 20210808
  Receipt Date: 20210808
  Transmission Date: 20211014
  Serious: Yes (Hospitalization, Other)
  Sender: FDA-Public Use
  Company Number: FR-SA-2021SA251343

PATIENT
  Age: 66 Year
  Sex: Male
  Weight: 55 kg

DRUGS (1)
  1. CAPRELSA [Suspect]
     Active Substance: VANDETANIB
     Indication: MEDULLARY THYROID CANCER
     Dosage: 300 MG, QD
     Route: 048
     Dates: start: 20201110, end: 20210208

REACTIONS (2)
  - Hypertension [Recovered/Resolved with Sequelae]
  - Nephroangiosclerosis [Not Recovered/Not Resolved]

NARRATIVE: CASE EVENT DATE: 202011
